FAERS Safety Report 8201590-3 (Version None)
Quarter: 2012Q1

REPORT INFORMATION
  Report Type: 
  Country: None (occurrence: None)
  Receive Date: 20120312
  Receipt Date: 20120307
  Transmission Date: 20120608
  Serious: Yes (Death)
  Sender: FDA-Public Use
  Company Number: US-CELGENEUS-163-21880-12030803

PATIENT
  Sex: Male

DRUGS (9)
  1. OXYGEN [Concomitant]
     Route: 065
  2. SPIRIVA [Concomitant]
     Route: 065
  3. PREDNISONE [Concomitant]
     Route: 065
  4. TYLENOL PM EXTRA STRENGTH [Concomitant]
     Route: 065
  5. STOOL SOFTENER [Concomitant]
     Route: 065
  6. ALBUTEROL SULFATE [Concomitant]
     Route: 065
  7. SYMBICORT [Concomitant]
     Route: 065
  8. REVLIMID [Suspect]
     Dosage: 5 MILLIGRAM
     Route: 048
     Dates: start: 20111116, end: 20120101
  9. VITAMIN D [Concomitant]
     Route: 065

REACTIONS (1)
  - DEATH [None]
